FAERS Safety Report 22298263 (Version 1)
Quarter: 2023Q2

REPORT INFORMATION
  Report Type: Spontaneous
  Country: ES (occurrence: ES)
  Receive Date: 20230509
  Receipt Date: 20230509
  Transmission Date: 20230722
  Serious: Yes (Other)
  Sender: FDA-Public Use
  Company Number: None

PATIENT

DRUGS (1)
  1. LAMICTAL [Suspect]
     Active Substance: LAMOTRIGINE
     Indication: Status epilepticus
     Dosage: 100 MG, BID
     Route: 048
     Dates: start: 20230408, end: 20230413

REACTIONS (1)
  - Eyelid myoclonus [Recovered/Resolved]

NARRATIVE: CASE EVENT DATE: 20230408
